FAERS Safety Report 18284274 (Version 2)
Quarter: 2020Q4

REPORT INFORMATION
  Report Type: Spontaneous
  Country: US (occurrence: US)
  Receive Date: 20200918
  Receipt Date: 20201011
  Transmission Date: 20210113
  Serious: No
  Sender: FDA-Public Use
  Company Number: US-LEXICON PHARMACEUTICALS, INC-20-1606-00719

PATIENT
  Age: 53 Year
  Sex: Male

DRUGS (4)
  1. SANDOSTATIN [Concomitant]
     Active Substance: OCTREOTIDE ACETATE
  2. XERMELO [Suspect]
     Active Substance: TELOTRISTAT ETHYL
     Indication: NEUROENDOCRINE TUMOUR
     Dates: start: 20200716
  3. XERMELO [Suspect]
     Active Substance: TELOTRISTAT ETHYL
     Indication: CARCINOID SYNDROME
  4. XERMELO [Suspect]
     Active Substance: TELOTRISTAT ETHYL
     Indication: DIARRHOEA

REACTIONS (1)
  - Memory impairment [Not Recovered/Not Resolved]
